FAERS Safety Report 9088740 (Version 1)
Quarter: 2013Q1

REPORT INFORMATION
  Report Type: Spontaneous
  Country: CH (occurrence: CH)
  Receive Date: 20130131
  Receipt Date: 20130131
  Transmission Date: 20140127
  Serious: Yes (Other)
  Sender: FDA-Public Use
  Company Number: PHHY2013CH008000

PATIENT
  Sex: Female

DRUGS (9)
  1. GABAPENTIN SANDOZ [Suspect]
     Indication: NECK PAIN
     Dosage: 600MG IN THE EVENING
     Route: 048
     Dates: start: 20130124
  2. GABAPENTIN SANDOZ [Suspect]
     Indication: INSOMNIA
  3. NISULID [Concomitant]
  4. TRAUMALIX [Concomitant]
  5. SIRDALUD [Concomitant]
  6. TARGIN [Concomitant]
  7. MAGNESIUM HYDROXIDE [Concomitant]
  8. EUTHYROX [Concomitant]
  9. RANITIDIN [Concomitant]

REACTIONS (4)
  - Exophthalmos [Recovered/Resolved]
  - Paresis [Recovered/Resolved]
  - Headache [Recovered/Resolved]
  - Insomnia [Recovered/Resolved]
